FAERS Safety Report 8800578 (Version 2)
Quarter: 2014Q4

REPORT INFORMATION
  Report Type: Report from Study
  Country: US (occurrence: US)
  Receive Date: 20120921
  Receipt Date: 20141215
  Transmission Date: 20150529
  Serious: Yes (Death)
  Sender: FDA-Public Use
  Company Number: US-ROCHE-1104287

PATIENT
  Sex: Female

DRUGS (16)
  1. CARBOPLATIN. [Concomitant]
     Active Substance: CARBOPLATIN
     Route: 065
  2. EMEND [Concomitant]
     Active Substance: APREPITANT
     Route: 042
  3. CARBOPLATIN. [Concomitant]
     Active Substance: CARBOPLATIN
     Route: 065
  4. DECADRON [Concomitant]
     Active Substance: DEXAMETHASONE
     Route: 042
  5. TAGAMET [Concomitant]
     Active Substance: CIMETIDINE
     Route: 042
  6. CARBOPLATIN. [Concomitant]
     Active Substance: CARBOPLATIN
     Route: 065
  7. EMEND [Concomitant]
     Active Substance: APREPITANT
     Route: 042
  8. TAXOTERE [Concomitant]
     Active Substance: DOCETAXEL
     Route: 065
  9. BENADRYL [Concomitant]
     Active Substance: DIPHENHYDRAMINE HYDROCHLORIDE
     Route: 042
  10. FAMOTIDINE. [Concomitant]
     Active Substance: FAMOTIDINE
     Route: 042
  11. ATROPIN [Concomitant]
     Route: 042
  12. HYDROCORTISONE. [Concomitant]
     Active Substance: HYDROCORTISONE
     Route: 042
  13. NEULASTA [Suspect]
     Active Substance: PEGFILGRASTIM
     Indication: PRODUCT USED FOR UNKNOWN INDICATION
     Route: 058
  14. ALOXI [Concomitant]
     Active Substance: PALONOSETRON HYDROCHLORIDE
     Route: 042
  15. AVASTIN [Suspect]
     Active Substance: BEVACIZUMAB
     Indication: OVARIAN CANCER
     Dosage: THE PATIENT RECEIVED DOSE ON FOLLWOING DATES: 10/NOV/2010, 20/OCT/2010, 01/DEC/2010, 29/DEC/2010, 19
     Route: 065
     Dates: start: 20100929
  16. CARBOPLATIN. [Concomitant]
     Active Substance: CARBOPLATIN
     Route: 065

REACTIONS (1)
  - Death [Fatal]
